FAERS Safety Report 24125834 (Version 1)
Quarter: 2024Q3

REPORT INFORMATION
  Report Type: Spontaneous
  Country: ES (occurrence: ES)
  Receive Date: 20240723
  Receipt Date: 20240723
  Transmission Date: 20241017
  Serious: Yes (Death)
  Sender: PFIZER
  Company Number: ES-PFIZER INC-202400220451

PATIENT
  Age: 64 Year
  Sex: Female

DRUGS (18)
  1. CARBOPLATIN [Suspect]
     Active Substance: CARBOPLATIN
     Indication: Small cell lung cancer
     Dosage: 383.76 MG, CYCLIC (EVERY 21 DAYS)
     Route: 042
     Dates: start: 20240625, end: 20240625
  2. ONDANSETRON [Concomitant]
     Active Substance: ONDANSETRON
     Indication: Nausea
     Dosage: 8 MG, CYCLIC (EVERY 21 DAYS)
  3. ONDANSETRON [Concomitant]
     Active Substance: ONDANSETRON
     Indication: Vomiting
     Dosage: 4 MG, 2X/DAY
  4. DEXAMETHASONE [Concomitant]
     Active Substance: DEXAMETHASONE
     Indication: Nausea
     Dosage: 8 MG, CYCLIC (DAYS 1 AND 3 OF CYCLE. CYCLE DURATION: 21 DAYS)
  5. DEXAMETHASONE [Concomitant]
     Active Substance: DEXAMETHASONE
     Indication: Vomiting
     Dosage: 4 MG, DAILY
  6. ETOPOSIDE [Concomitant]
     Active Substance: ETOPOSIDE
     Indication: Small cell lung cancer
     Dosage: 165 MG, CYCLIC (DAYS 1 AND 3 OF CYCLE. CYCLE DURATION: 21 DAYS)
  7. IBUPROFEN [Concomitant]
     Active Substance: IBUPROFEN
     Indication: Pain
     Dosage: 600 MG, 3X/DAY
  8. IBUPROFEN [Concomitant]
     Active Substance: IBUPROFEN
     Indication: Inflammation
  9. METFORMIN [Concomitant]
     Active Substance: METFORMIN HYDROCHLORIDE
     Indication: Diabetes mellitus
     Dosage: 850 MG, DAILY
  10. METOCLOPRAMIDE HYDROCHLORIDE [Concomitant]
     Active Substance: METOCLOPRAMIDE HYDROCHLORIDE
     Indication: Nausea
     Dosage: 10 MG, 3X/DAY
  11. METOCLOPRAMIDE HYDROCHLORIDE [Concomitant]
     Active Substance: METOCLOPRAMIDE HYDROCHLORIDE
     Indication: Vomiting
  12. OMEPRAZOLE [Concomitant]
     Active Substance: OMEPRAZOLE
     Indication: Prophylaxis against gastrointestinal ulcer
     Dosage: 20 MG, DAILY
  13. ACETAMINOPHEN [Concomitant]
     Active Substance: ACETAMINOPHEN
     Indication: Pain
     Dosage: 1 G, 3X/DAY
  14. SIMVASTATIN [Concomitant]
     Active Substance: SIMVASTATIN
     Indication: Dyslipidaemia
     Dosage: 40 MG, DAILY
  15. BECLOMETASONE/FORMOTEROL/GLYCOPYRRONIUM [Concomitant]
     Indication: Chronic obstructive pulmonary disease
     Dosage: 88/5/9 UG
  16. ENALAPRIL [Concomitant]
     Active Substance: ENALAPRIL
     Indication: Hypertension
     Dosage: 20 MG, DAILY
  17. FENTANYL [Concomitant]
     Active Substance: FENTANYL\FENTANYL CITRATE
     Indication: Pain
     Dosage: 25 UG/H, CYCLIC (EVERY 72H)
  18. IPRATROPIUM BROMIDE [Concomitant]
     Active Substance: IPRATROPIUM BROMIDE\IPRATROPIUM BROMIDE ANHYDROUS
     Indication: Chronic obstructive pulmonary disease
     Dosage: 40 MG, 4X/DAY

REACTIONS (3)
  - Respiratory tract infection [Fatal]
  - COVID-19 [Fatal]
  - Pancytopenia [Fatal]

NARRATIVE: CASE EVENT DATE: 20240706
